FAERS Safety Report 8358784-6 (Version None)
Quarter: 2012Q2

REPORT INFORMATION
  Report Type: 
  Country: None (occurrence: None)
  Receive Date: 20120514
  Receipt Date: 20120506
  Transmission Date: 20120825
  Serious: Yes (Hospitalization, Other)
  Sender: FDA-Public Use
  Company Number: CA-ELI_LILLY_AND_COMPANY-CA201205002202

PATIENT
  Age: 79 Year
  Sex: Male

DRUGS (3)
  1. PANTOPRAZOLE SODIUM [Concomitant]
  2. RAMIPRIL [Concomitant]
     Dosage: 5 MG, UNK
  3. FORTEO [Suspect]
     Indication: OSTEOPOROSIS
     Dosage: 20 UG, QD
     Route: 058
     Dates: start: 20111118

REACTIONS (6)
  - GASTROINTESTINAL HAEMORRHAGE [None]
  - COLITIS ULCERATIVE [None]
  - LOSS OF CONSCIOUSNESS [None]
  - CLOSTRIDIAL INFECTION [None]
  - BLOOD CALCIUM DECREASED [None]
  - MUSCLE SPASMS [None]
